FAERS Safety Report 11863091 (Version 1)
Quarter: 2015Q4

REPORT INFORMATION
  Report Type: Spontaneous
  Country: US (occurrence: US)
  Receive Date: 20151223
  Receipt Date: 20151223
  Transmission Date: 20160305
  Serious: Yes (Other)
  Sender: FDA-Public Use
  Company Number: US-JNJFOC-20151209201

PATIENT

DRUGS (2)
  1. TYLENOL PM EXTRA STRENGTH [Suspect]
     Active Substance: ACETAMINOPHEN\DIPHENHYDRAMINE HYDROCHLORIDE
     Indication: JUVENILE IDIOPATHIC ARTHRITIS
     Dosage: (USUALLY ONE OR ONE AND A HALF) BUT TOOK ONE OR TWO PILLS
     Route: 065
  2. TYLENOL PM EXTRA STRENGTH [Suspect]
     Active Substance: ACETAMINOPHEN\DIPHENHYDRAMINE HYDROCHLORIDE
     Indication: SLEEP DISORDER
     Dosage: (USUALLY ONE OR ONE AND A HALF) BUT TOOK ONE OR TWO PILLS
     Route: 065

REACTIONS (3)
  - Vomiting [Unknown]
  - Loss of consciousness [Unknown]
  - Memory impairment [Unknown]
